FAERS Safety Report 20587554 (Version 1)
Quarter: 2022Q1

REPORT INFORMATION
  Report Type: Spontaneous
  Country: US (occurrence: US)
  Receive Date: 20220314
  Receipt Date: 20220314
  Transmission Date: 20220423
  Serious: No
  Sender: FDA-Public Use
  Company Number: US-TEVA-2022-US-2013714

PATIENT
  Sex: Female

DRUGS (1)
  1. FAMOTIDINE [Suspect]
     Active Substance: FAMOTIDINE
     Indication: Gastric pH decreased
     Dosage: 40 MILLIGRAM DAILY;
     Route: 065

REACTIONS (2)
  - Suspected product contamination [Not Recovered/Not Resolved]
  - Laboratory test abnormal [Not Recovered/Not Resolved]
